FAERS Safety Report 5395589-2 (Version None)
Quarter: 2007Q3

REPORT INFORMATION
  Report Type: 
  Country: None (occurrence: None)
  Receive Date: 20070718
  Receipt Date: 20070326
  Transmission Date: 20080115
  Serious: Yes (Death, Hospitalization, Other)
  Sender: FDA-Public Use
  Company Number: 2006133812

PATIENT
  Age: 58 Year
  Sex: Male

DRUGS (2)
  1. CELEBREX [Suspect]
     Indication: PAIN
  2. VIOXX [Suspect]
     Dates: start: 20000522, end: 20020110

REACTIONS (1)
  - ACUTE MYOCARDIAL INFARCTION [None]
